FAERS Safety Report 5759766-0 (Version None)
Quarter: 2008Q2

REPORT INFORMATION
  Report Type: 
  Country: None (occurrence: None)
  Receive Date: 20080605
  Receipt Date: 20080529
  Transmission Date: 20081010
  Serious: Yes (Hospitalization, Other)
  Sender: FDA-Public Use
  Company Number: B0513355A

PATIENT
  Age: 85 Year
  Sex: Female
  Weight: 55 kg

DRUGS (3)
  1. ARIXTRA [Suspect]
     Indication: DEEP VEIN THROMBOSIS
     Dosage: 2.5MG PER DAY
     Route: 058
     Dates: start: 20071002, end: 20071003
  2. ARIXTRA [Suspect]
     Dosage: 5MG PER DAY
     Route: 058
     Dates: start: 20071003, end: 20071007
  3. PREVISCAN [Concomitant]
     Indication: VENOUS THROMBOSIS
     Route: 048
     Dates: start: 20071003

REACTIONS (4)
  - FISTULA [None]
  - HAEMATOMA [None]
  - HAEMOGLOBIN DECREASED [None]
  - SKIN NECROSIS [None]
